FAERS Safety Report 9079078 (Version 1)
Quarter: 2013Q1

REPORT INFORMATION
  Report Type: Report from Study
  Country: US (occurrence: US)
  Receive Date: 20130130
  Receipt Date: 20130130
  Transmission Date: 20140127
  Serious: No
  Sender: FDA-Public Use
  Company Number: US-ABBOTT-12P-163-0978583-00

PATIENT
  Sex: Female

DRUGS (8)
  1. HUMIRA [Suspect]
     Indication: RHEUMATOID ARTHRITIS
     Dates: start: 201201, end: 201202
  2. ATENOLOL [Concomitant]
     Indication: HYPERTENSION
  3. METHOTREXATE [Concomitant]
     Indication: RHEUMATOID ARTHRITIS
  4. NORVASC [Concomitant]
     Indication: HYPERTENSION
  5. VOLTAREN [Concomitant]
     Indication: RHEUMATOID ARTHRITIS
  6. PREDNISONE [Concomitant]
     Indication: RHEUMATOID ARTHRITIS
  7. SYMBICORT [Concomitant]
     Indication: ASTHMA
  8. SPIRIVA [Concomitant]
     Indication: EMPHYSEMA

REACTIONS (1)
  - Tuberculin test positive [Not Recovered/Not Resolved]
